FAERS Safety Report 6157340-8 (Version None)
Quarter: 2009Q2

REPORT INFORMATION
  Report Type: 
  Country: None (occurrence: None)
  Receive Date: 20090416
  Receipt Date: 20090406
  Transmission Date: 20091009
  Serious: Yes (Hospitalization, Other)
  Sender: FDA-Public Use
  Company Number: DE-ABBOTT-08P-062-0482423-00

PATIENT
  Sex: Male
  Weight: 2.125 kg

DRUGS (10)
  1. SEVOFLURANE [Suspect]
     Indication: ANAESTHESIA
     Dosage: 8%-2.5% RANGE
     Route: 055
     Dates: start: 20060708
  2. SEVOFLURANE [Suspect]
     Dosage: 3.2%-2% RANGE
     Route: 055
     Dates: start: 20060817
  3. SUFENTANIL [Suspect]
     Indication: DRUG USE FOR UNKNOWN INDICATION
  4. REMIFENTANIL [Concomitant]
     Indication: DRUG USE FOR UNKNOWN INDICATION
     Dates: start: 20060708
  5. SUFENTANIL [Concomitant]
     Dosage: 2 MICROGRAMS BOLUS
     Dates: start: 20060708
  6. AMPICILLIN [Concomitant]
     Indication: ANTIBIOTIC PROPHYLAXIS
     Dates: start: 20060708
  7. CEFOTAXIM [Concomitant]
     Indication: ANTIBIOTIC PROPHYLAXIS
     Dates: start: 20060708
  8. INFUSION/NACL [Concomitant]
     Indication: DRUG USE FOR UNKNOWN INDICATION
     Dosage: 15 ML/H/20 ML/H
     Dates: start: 20060817
  9. ERYTHROCYT CONCENTRATE [Concomitant]
     Indication: DRUG USE FOR UNKNOWN INDICATION
     Dates: start: 20060817
  10. DOPAMINE HCL [Concomitant]
     Indication: HYPOTONIA
     Dates: start: 20060708

REACTIONS (15)
  - BLOOD GLUCOSE DECREASED [None]
  - BRADYCARDIA [None]
  - BRAIN INJURY [None]
  - CONVULSION [None]
  - HAEMOGLOBIN DECREASED [None]
  - HYPERCAPNIA [None]
  - HYPOTONIA [None]
  - HYPOXIC ENCEPHALOPATHY [None]
  - LACTIC ACIDOSIS [None]
  - METABOLIC ACIDOSIS [None]
  - PLEURAL FISTULA [None]
  - PNEUMONIA ASPIRATION [None]
  - PULMONARY HYPERTENSION [None]
  - RESPIRATORY ACIDOSIS [None]
  - TRACHEOMALACIA [None]
